FAERS Safety Report 15602059 (Version 4)
Quarter: 2019Q1

REPORT INFORMATION
  Report Type: Report from Study
  Country: ES (occurrence: ES)
  Receive Date: 20181109
  Receipt Date: 20190226
  Transmission Date: 20190417
  Serious: Yes (Hospitalization, Other)
  Sender: FDA-Public Use
  Company Number: ES-PFIZER INC-2018257326

PATIENT
  Age: 47 Year
  Sex: Female
  Weight: 91.6 kg

DRUGS (8)
  1. OMEPRAZOLE. [Concomitant]
     Active Substance: OMEPRAZOLE
     Indication: PROPHYLAXIS
     Dosage: 20 MG, 1X/DAY
     Route: 048
     Dates: start: 20130611, end: 20161208
  2. AVASTIN [Suspect]
     Active Substance: BEVACIZUMAB
     Dosage: 10 MG/KG, EVERY 3 WEEKS
     Route: 042
  3. RANITIDINE. [Concomitant]
     Active Substance: RANITIDINE
     Indication: PROPHYLAXIS
     Dosage: 150 MG, 1X/DAY
     Route: 048
     Dates: start: 20160329, end: 20161208
  4. PACLITAXEL. [Suspect]
     Active Substance: PACLITAXEL
     Dosage: 90 MG/M2, EVERY 3 WEEKS
     Route: 042
  5. PACLITAXEL. [Suspect]
     Active Substance: PACLITAXEL
     Indication: BREAST CANCER METASTATIC
     Dosage: 90 MG/M2, EVERY 3 WEEKS
     Route: 042
     Dates: start: 20160510, end: 20160926
  6. AVASTIN [Suspect]
     Active Substance: BEVACIZUMAB
     Indication: BREAST CANCER METASTATIC
     Dosage: 10 MG/KG, EVERY 3 WEEKS
     Route: 042
     Dates: start: 20160510, end: 20160919
  7. LORAZEPAM. [Concomitant]
     Active Substance: LORAZEPAM
     Indication: PROPHYLAXIS
     Dosage: 15 MG, 1X/DAY
     Route: 048
     Dates: start: 20130813, end: 20161205
  8. LORAZEPAM. [Concomitant]
     Active Substance: LORAZEPAM
     Dosage: 5 MG, 1X/DAY
     Route: 048
     Dates: start: 20130813, end: 20161205

REACTIONS (20)
  - Asthenia [Recovered/Resolved]
  - Constipation [Recovered/Resolved]
  - Ascites [Recovered/Resolved]
  - Abdominal pain [Recovered/Resolved]
  - Asthenia [Recovered/Resolved]
  - Abdominal pain [Recovered/Resolved]
  - Hypertension [Recovered/Resolved]
  - Urinary tract infection [Recovered/Resolved]
  - Oliguria [Recovered/Resolved]
  - Abdominal pain [Recovered/Resolved]
  - Groin abscess [Recovered/Resolved]
  - Bacteraemia [Not Recovered/Not Resolved]
  - Intestinal obstruction [Recovered/Resolved]
  - Vomiting [Recovered/Resolved]
  - Pyrexia [Recovered/Resolved]
  - Asthenia [Recovered/Resolved]
  - Intestinal obstruction [Recovered/Resolved]
  - Skin lesion [Recovered/Resolved]
  - Diarrhoea [Recovered/Resolved]
  - Sepsis [Recovered/Resolved]

NARRATIVE: CASE EVENT DATE: 20160511
